FAERS Safety Report 5255373-7 (Version None)
Quarter: 2007Q1

REPORT INFORMATION
  Report Type: 
  Country: None (occurrence: None)
  Receive Date: 20070305
  Receipt Date: 20070226
  Transmission Date: 20070707
  Serious: Yes (Death)
  Sender: FDA-Public Use
  Company Number: US-JNJFOC-20061100479

PATIENT
  Sex: Male

DRUGS (2)
  1. DURAGESIC [Suspect]
     Indication: CANCER PAIN
     Route: 062
  2. PAIN MEDICATION [Concomitant]
     Indication: PAIN
     Route: 048

REACTIONS (3)
  - DEATH [None]
  - PAIN [None]
  - TUMOUR FLARE [None]
